FAERS Safety Report 18559645 (Version 1)
Quarter: 2020Q4

REPORT INFORMATION
  Report Type: Spontaneous
  Country: IT (occurrence: IT)
  Receive Date: 20201130
  Receipt Date: 20201130
  Transmission Date: 20210114
  Serious: Yes (Life-Threatening)
  Sender: FDA-Public Use
  Company Number: IT-TEVA-2020-IT-1801193

PATIENT
  Age: 49 Year
  Sex: Female

DRUGS (3)
  1. SERENASE 2 MG/ML GOCCE ORALI, SOLUZIONE [Suspect]
     Active Substance: HALOPERIDOL
     Dosage: 4 MG
     Route: 048
     Dates: start: 20200622, end: 20200622
  2. CLOZAPINE. [Suspect]
     Active Substance: CLOZAPINE
     Dosage: 33600 MG
     Route: 065
     Dates: start: 20200622, end: 20200622
  3. TRIATEC (RAMIPRIL) [Suspect]
     Active Substance: RAMIPRIL
     Dosage: 280 MG
     Route: 048
     Dates: start: 20200622, end: 20200622

REACTIONS (2)
  - Suicide attempt [Recovering/Resolving]
  - Poisoning [Recovering/Resolving]

NARRATIVE: CASE EVENT DATE: 20200622
